FAERS Safety Report 13552354 (Version 1)
Quarter: 2017Q2

REPORT INFORMATION
  Report Type: Report from Study
  Country: GB (occurrence: GB)
  Receive Date: 20170517
  Receipt Date: 20170517
  Transmission Date: 20170830
  Serious: Yes (Hospitalization)
  Sender: FDA-Public Use
  Company Number: GB-AMGEN-GBRSL2017072262

PATIENT
  Sex: Female

DRUGS (2)
  1. ARANESP [Suspect]
     Active Substance: DARBEPOETIN ALFA
     Indication: PRODUCT USED FOR UNKNOWN INDICATION
     Dosage: 60 MUG, UNK
     Route: 065
  2. IRON [Concomitant]
     Active Substance: IRON
     Route: 065

REACTIONS (5)
  - Fluid retention [Unknown]
  - Infection [Unknown]
  - Renal disorder [Unknown]
  - Poisoning [Unknown]
  - Delirium [Unknown]
